FAERS Safety Report 24752977 (Version 1)
Quarter: 2024Q4

REPORT INFORMATION
  Report Type: Spontaneous
  Country: FR (occurrence: FR)
  Receive Date: 20241219
  Receipt Date: 20241219
  Transmission Date: 20250114
  Serious: Yes (Hospitalization, Other)
  Sender: ALEXION PHARMACEUTICALS
  Company Number: FR-SA-2024SA372471

PATIENT

DRUGS (4)
  1. BEYFORTUS [Suspect]
     Active Substance: NIRSEVIMAB-ALIP
     Indication: Respiratory syncytial virus immunisation
     Dosage: UNK UNK, 1X
     Route: 065
  2. BEYFORTUS [Suspect]
     Active Substance: NIRSEVIMAB-ALIP
     Dosage: UNK UNK, 1X
     Route: 065
  3. BEYFORTUS [Suspect]
     Active Substance: NIRSEVIMAB-ALIP
     Dosage: UNK UNK, 1X
     Route: 065
  4. BEYFORTUS [Suspect]
     Active Substance: NIRSEVIMAB-ALIP
     Dosage: UNK UNK, 1X
     Route: 065

REACTIONS (2)
  - Bronchiolitis [Unknown]
  - Drug ineffective [Unknown]
